FAERS Safety Report 9249082 (Version 1)
Quarter: 2013Q2

REPORT INFORMATION
  Report Type: Spontaneous
  Country: DE (occurrence: DE)
  Receive Date: 20130423
  Receipt Date: 20130423
  Transmission Date: 20140414
  Serious: Yes (Hospitalization, Disabling, Other)
  Sender: FDA-Public Use
  Company Number: DE-ELI_LILLY_AND_COMPANY-DE201304004778

PATIENT
  Age: 50 Year
  Sex: Male

DRUGS (4)
  1. ZYPREXA [Suspect]
     Indication: SCHIZOPHRENIA, CATATONIC TYPE
     Dosage: 15 MG, QD
     Route: 048
     Dates: start: 20121012
  2. TAVOR [Concomitant]
     Dosage: 4 MG, UNK
     Dates: start: 20120911
  3. CIPRAMIL [Concomitant]
     Dosage: 20 MG, UNK
     Dates: start: 20121218
  4. KEPRA [Concomitant]
     Dosage: 1000 MG, UNK
     Dates: start: 20120911

REACTIONS (7)
  - Diabetes mellitus [Not Recovered/Not Resolved]
  - Diabetic foot [Not Recovered/Not Resolved]
  - Localised infection [Unknown]
  - Diabetic neuropathy [Unknown]
  - Impaired healing [Unknown]
  - Weight increased [Unknown]
  - Oedema peripheral [Unknown]
